FAERS Safety Report 7054053-5 (Version None)
Quarter: 2010Q4

REPORT INFORMATION
  Report Type: 
  Country: None (occurrence: None)
  Receive Date: 20101015
  Receipt Date: 20100929
  Transmission Date: 20110411
  Serious: Yes (Death, Other)
  Sender: FDA-Public Use
  Company Number: 011249

PATIENT

DRUGS (5)
  1. BUSULFEX [Suspect]
     Indication: STEM CELL TRANSPLANT
     Dosage: 3.2 MG/KG, DAILY
  2. ATG (ANTILYMPHOCYTE IMMUNOGLOBULIN (HORSE)) [Concomitant]
  3. MELPHALAN HYDROCHLORIDE [Concomitant]
  4. FLUDARABINE PHOSPHATE [Concomitant]
  5. TACROLIMUS [Concomitant]

REACTIONS (20)
  - ACUTE GRAFT VERSUS HOST DISEASE [None]
  - CARDIAC FAILURE [None]
  - CHRONIC GRAFT VERSUS HOST DISEASE [None]
  - CYTOMEGALOVIRUS COLITIS [None]
  - CYTOMEGALOVIRUS TEST POSITIVE [None]
  - ENCEPHALITIS [None]
  - EPSTEIN-BARR VIRUS ASSOCIATED LYMPHOPROLIFERATIVE DISORDER [None]
  - GASTROINTESTINAL HAEMORRHAGE [None]
  - HAEMORRHAGE INTRACRANIAL [None]
  - HEPATIC FAILURE [None]
  - HERPES VIRUS INFECTION [None]
  - INTERSTITIAL LUNG DISEASE [None]
  - MYOCARDITIS [None]
  - PNEUMONIA [None]
  - RENAL FAILURE [None]
  - RETINITIS [None]
  - SEPSIS [None]
  - THROMBOTIC MICROANGIOPATHY [None]
  - TRANSPLANT REJECTION [None]
  - VENOOCCLUSIVE DISEASE [None]
